FAERS Safety Report 8565565-7 (Version None)
Quarter: 2012Q3

REPORT INFORMATION
  Report Type: 
  Country: None (occurrence: None)
  Receive Date: 20120803
  Receipt Date: 20120723
  Transmission Date: 20120928
  Serious: Yes (Hospitalization, Other)
  Sender: FDA-Public Use
  Company Number: FR-JNJFOC-20120711964

PATIENT
  Sex: Male

DRUGS (1)
  1. RISPERDAL [Suspect]
     Indication: PRODUCT USED FOR UNKNOWN INDICATION
     Dosage: 10 MG IN THE MORNING AND 15 MG IN THE EVENING
     Route: 048
     Dates: start: 20120404, end: 20120404

REACTIONS (7)
  - TACHYCARDIA [None]
  - DRUG PRESCRIBING ERROR [None]
  - BUNDLE BRANCH BLOCK RIGHT [None]
  - HYPOTENSION [None]
  - POISONING [None]
  - COGWHEEL RIGIDITY [None]
  - SOMNOLENCE [None]
